FAERS Safety Report 4294918-0 (Version None)
Quarter: 2004Q1

REPORT INFORMATION
  Report Type: 
  Country: None (occurrence: None)
  Receive Date: 20040216
  Receipt Date: 20030227
  Transmission Date: 20041129
  Serious: No
  Sender: FDA-Public Use
  Company Number: US-GLAXOSMITHKLINE-A0398328A

PATIENT
  Age: 26 Year
  Sex: Female
  Weight: 54.5 kg

DRUGS (2)
  1. LAMICTAL [Suspect]
     Dosage: 25MG ALTERNATE DAYS
     Route: 048
     Dates: start: 20030115, end: 20030201
  2. VALPROIC ACID [Concomitant]
     Dosage: 500MG TWICE PER DAY
     Route: 048
     Dates: start: 19930101

REACTIONS (11)
  - ERYTHEMA [None]
  - LYMPHADENOPATHY [None]
  - MALAISE [None]
  - OEDEMA PERIPHERAL [None]
  - PAIN [None]
  - PETECHIAE [None]
  - PRURITUS [None]
  - PYREXIA [None]
  - RASH [None]
  - RASH MACULAR [None]
  - URTICARIA [None]
